FAERS Safety Report 7177092-2 (Version None)
Quarter: 2010Q4

REPORT INFORMATION
  Report Type: 
  Country: None (occurrence: None)
  Receive Date: 20101220
  Receipt Date: 20101206
  Transmission Date: 20110411
  Serious: Yes (Hospitalization, Other)
  Sender: FDA-Public Use
  Company Number: PHHY2010BR83679

PATIENT
  Sex: Male

DRUGS (12)
  1. DIOVAN [Suspect]
     Dosage: 90 MG
     Route: 048
  2. DIOVAN [Suspect]
     Dosage: 120 MG
     Route: 048
  3. DIOVAN [Suspect]
     Dosage: 1 TABLET AT NIGHT
     Route: 048
  4. ZANIDIP [Suspect]
  5. ADALAT [Concomitant]
     Dosage: 1 TABLET AT NIGHT
     Route: 048
  6. DIOSMIN [Concomitant]
     Dosage: UNK
  7. HESPERIDIN [Concomitant]
     Dosage: AT NIGHT
  8. FLUOXETINE HCL [Concomitant]
     Indication: ANTIDEPRESSANT THERAPY
     Dosage: UNK
  9. ATENSINA [Concomitant]
     Indication: BLOOD PRESSURE
     Dosage: 1 TABLET EVERY 8 HOURS
  10. DAFLON [Concomitant]
     Indication: DIABETES MELLITUS
     Dosage: 500I, N THE MORNING AND AT NIGHT
  11. INDAPEN [Concomitant]
     Dosage: 1 TABLET IN THE MORNING
     Route: 048
  12. MANIDIPINE [Concomitant]
     Indication: BLOOD PRESSURE

REACTIONS (9)
  - ASTHMA [None]
  - BLOOD CHOLESTEROL INCREASED [None]
  - BLOOD PRESSURE INADEQUATELY CONTROLLED [None]
  - BURNING SENSATION [None]
  - CHOLELITHOTOMY [None]
  - DIABETES MELLITUS [None]
  - ERECTILE DYSFUNCTION [None]
  - HEART RATE INCREASED [None]
  - RENAL PAIN [None]
